FAERS Safety Report 8113553-7 (Version None)
Quarter: 2012Q1

REPORT INFORMATION
  Report Type: 
  Country: None (occurrence: None)
  Receive Date: 20120203
  Receipt Date: 20120201
  Transmission Date: 20120608
  Serious: Yes (Death, Hospitalization)
  Sender: FDA-Public Use
  Company Number: PHHY2012US008386

PATIENT
  Age: 14 Year
  Sex: Male

DRUGS (2)
  1. PREDNISONE TAB [Concomitant]
     Indication: ACUTE LYMPHOCYTIC LEUKAEMIA
  2. METHOTREXATE [Suspect]
     Indication: ACUTE LYMPHOCYTIC LEUKAEMIA
     Dosage: 100 MG/M2, UNK

REACTIONS (19)
  - PNEUMONIA [None]
  - AMMONIA INCREASED [None]
  - EJECTION FRACTION DECREASED [None]
  - SEPSIS [None]
  - PYREXIA [None]
  - GENERAL PHYSICAL HEALTH DETERIORATION [None]
  - ENCEPHALOPATHY [None]
  - HEPATORENAL SYNDROME [None]
  - HYPOTENSION [None]
  - IRON OVERLOAD [None]
  - RESPIRATORY FAILURE [None]
  - BACTERAEMIA [None]
  - HEPATIC CIRRHOSIS [None]
  - HEPATIC FAILURE [None]
  - COAGULOPATHY [None]
  - LIVER FUNCTION TEST ABNORMAL [None]
  - LEFT VENTRICULAR DYSFUNCTION [None]
  - ATRIAL FIBRILLATION [None]
  - FUNGAEMIA [None]
